FAERS Safety Report 8277036-6 (Version None)
Quarter: 2012Q2

REPORT INFORMATION
  Report Type: 
  Country: None (occurrence: None)
  Receive Date: 20120412
  Receipt Date: 20120329
  Transmission Date: 20120825
  Serious: Yes (Hospitalization, Other)
  Sender: FDA-Public Use
  Company Number: BR-ROCHE-683075

PATIENT
  Sex: Male
  Weight: 75 kg

DRUGS (6)
  1. KETOPROFEN [Concomitant]
  2. OMEPRAZOLE [Concomitant]
  3. KETOPROFEN [Concomitant]
  4. MABTHERA [Suspect]
     Indication: RHEUMATOID ARTHRITIS
     Dosage: DOSE REPORTED AS 500 MG/5ML
     Route: 042
     Dates: start: 20090801, end: 20090801
  5. NAPROXEN [Concomitant]
  6. PREDNISONE TAB [Concomitant]

REACTIONS (6)
  - CHONDROPATHY [None]
  - JOINT RANGE OF MOTION DECREASED [None]
  - DRUG INEFFECTIVE [None]
  - ANAEMIA [None]
  - BONE PAIN [None]
  - RHEUMATOID ARTHRITIS [None]
